FAERS Safety Report 5123131-X (Version None)
Quarter: 2006Q4

REPORT INFORMATION
  Report Type: 
  Country: None (occurrence: None)
  Receive Date: 20061005
  Receipt Date: 20060927
  Transmission Date: 20070319
  Serious: Yes (Hospitalization)
  Sender: FDA-Public Use
  Company Number: 163-20785-06091153

PATIENT
  Age: 58 Year
  Sex: Male

DRUGS (2)
  1. THALOMID [Suspect]
     Indication: DRUG USE FOR UNKNOWN INDICATION
     Dosage: 200 MG,  4 IN 1 D, ORAL; 50 MG TO 200 MG, QD, ORAL
     Route: 048
     Dates: start: 20051219, end: 20060101
  2. THALOMID [Suspect]
     Indication: DRUG USE FOR UNKNOWN INDICATION
     Dosage: 200 MG,  4 IN 1 D, ORAL; 50 MG TO 200 MG, QD, ORAL
     Route: 048
     Dates: start: 20060404

REACTIONS (1)
  - SPINAL CORD NEOPLASM [None]
